FAERS Safety Report 6526688-7 (Version None)
Quarter: 2009Q4

REPORT INFORMATION
  Report Type: 
  Country: None (occurrence: None)
  Receive Date: 20091230
  Receipt Date: 20091215
  Transmission Date: 20100525
  Serious: Yes (Death, Other)
  Sender: FDA-Public Use
  Company Number: MC200900438

PATIENT

DRUGS (1)
  1. ANGIOMAX [Suspect]
     Indication: CORONARY ARTERIAL STENT INSERTION

REACTIONS (7)
  - CARDIOGENIC SHOCK [None]
  - CEREBROVASCULAR ACCIDENT [None]
  - MYOCARDIAL INFARCTION [None]
  - RENAL FAILURE [None]
  - REPERFUSION INJURY [None]
  - THROMBOSIS IN DEVICE [None]
  - VASCULAR PROCEDURE COMPLICATION [None]
